FAERS Safety Report 8141253-6 (Version None)
Quarter: 2012Q1

REPORT INFORMATION
  Report Type: 
  Country: None (occurrence: None)
  Receive Date: 20120216
  Receipt Date: 20120208
  Transmission Date: 20120608
  Serious: Yes (Hospitalization)
  Sender: FDA-Public Use
  Company Number: FR-VERTEX PHARMACEUTICALS INC.-AE-2011-002602

PATIENT
  Sex: Female
  Weight: 73 kg

DRUGS (18)
  1. LEVOTHYROXINE SODIUM [Concomitant]
     Dates: start: 20110308
  2. VENTOLIN [Concomitant]
  3. NEORECORMON [Concomitant]
     Indication: HAEMOGLOBIN DECREASED
     Dates: start: 20111004
  4. ACETAMINOPHEN [Concomitant]
  5. MS CONTIN [Concomitant]
     Indication: PRODUCT USED FOR UNKNOWN INDICATION
     Route: 048
     Dates: start: 20100618
  6. FORTIMEL [Concomitant]
  7. OXAZEPAM [Concomitant]
     Indication: PRODUCT USED FOR UNKNOWN INDICATION
     Route: 048
     Dates: start: 20091203
  8. COPEGUS [Concomitant]
     Indication: HEPATITIS C
     Route: 048
     Dates: start: 20110712
  9. PEGASYS [Concomitant]
     Indication: HEPATITIS C
     Route: 058
     Dates: start: 20110712
  10. LASIX [Concomitant]
  11. OXAZEPAM [Concomitant]
     Route: 048
  12. BACTRIM [Concomitant]
  13. VX-950 [Suspect]
     Indication: HEPATITIS C
     Route: 048
     Dates: start: 20110808, end: 20111102
  14. MS CONTIN [Concomitant]
     Route: 048
  15. ESCITALOPRAM OXALATE [Concomitant]
     Dates: start: 20100112
  16. TRUVADA [Concomitant]
     Indication: HIV INFECTION
     Route: 048
     Dates: start: 20070716
  17. REYATAZ [Concomitant]
     Indication: HIV INFECTION
     Route: 048
     Dates: start: 20070716
  18. OMEPRAZOLE [Concomitant]

REACTIONS (20)
  - HEPATIC FAILURE [None]
  - PSYCHOMOTOR RETARDATION [None]
  - MIOSIS [None]
  - CHRONIC OBSTRUCTIVE PULMONARY DISEASE [None]
  - COMA [None]
  - DRUG INTERACTION [None]
  - CEREBROVASCULAR ARTERIOVENOUS MALFORMATION [None]
  - DRUG WITHDRAWAL CONVULSIONS [None]
  - SOMNOLENCE [None]
  - HYPERCAPNIA [None]
  - METABOLIC ALKALOSIS [None]
  - HYPOVENTILATION [None]
  - RESPIRATORY FAILURE [None]
  - DRUG CLEARANCE DECREASED [None]
  - MALAISE [None]
  - ALTERED STATE OF CONSCIOUSNESS [None]
  - CHRONIC HEPATIC FAILURE [None]
  - MULTIPLE DRUG OVERDOSE [None]
  - AGITATION [None]
  - PYREXIA [None]
